FAERS Safety Report 5967493-X (Version None)
Quarter: 2008Q4

REPORT INFORMATION
  Report Type: 
  Country: None (occurrence: None)
  Receive Date: 20081125
  Receipt Date: 20081113
  Transmission Date: 20090506
  Serious: Yes (Hospitalization)
  Sender: FDA-Public Use
  Company Number: JP-PFIZER INC-2008084988

PATIENT
  Sex: Female

DRUGS (5)
  1. CELECOX [Suspect]
     Indication: OSTEOARTHRITIS
     Route: 048
     Dates: start: 20071226, end: 20080702
  2. CELECOX [Suspect]
  3. VESICARE [Concomitant]
     Indication: POLLAKIURIA
     Route: 048
     Dates: start: 20070605
  4. ALOSENN [Concomitant]
     Indication: CONSTIPATION
     Dosage: DAILY DOSE:2GRAM
     Dates: start: 20050502
  5. ADOFEED [Concomitant]
     Indication: OSTEOARTHRITIS
     Dates: start: 20070127

REACTIONS (1)
  - GASTRIC CANCER [None]
